FAERS Safety Report 8230809-8 (Version None)
Quarter: 2012Q1

REPORT INFORMATION
  Report Type: 
  Country: None (occurrence: None)
  Receive Date: 20120323
  Receipt Date: 20120321
  Transmission Date: 20120608
  Serious: Yes (Death, Hospitalization)
  Sender: FDA-Public Use
  Company Number: DE-EISAI INC-E2020-10524-SPO-DE

PATIENT
  Sex: Female

DRUGS (1)
  1. ARICEPT [Suspect]
     Route: 048
     Dates: start: 20080101

REACTIONS (1)
  - FALL [None]
